FAERS Safety Report 9336821 (Version 1)
Quarter: 2013Q2

REPORT INFORMATION
  Report Type: Report from Study
  Country: US (occurrence: US)
  Receive Date: 20130607
  Receipt Date: 20130607
  Transmission Date: 20140414
  Serious: Yes (Other)
  Sender: FDA-Public Use
  Company Number: PHEH2013US012308

PATIENT
  Age: 69 Year
  Sex: Male
  Weight: 72.11 kg

DRUGS (19)
  1. ZOMETA [Suspect]
  2. ALLEGRA [Concomitant]
  3. ASA [Concomitant]
  4. CALCIUM [Concomitant]
  5. VIT D [Concomitant]
  6. DEXAMETHASONE [Concomitant]
  7. FINASTERIDE [Concomitant]
  8. FOLIC ACID [Concomitant]
  9. GABAPENTIN [Concomitant]
  10. WARFARIN [Concomitant]
  11. VITAMIN B12 [Concomitant]
  12. TYLENOL [Concomitant]
  13. TAMSULOSIN [Concomitant]
  14. SOTALOL [Concomitant]
  15. REVLIMID [Concomitant]
  16. METFORMIN [Concomitant]
  17. KEPPRA [Concomitant]
  18. HYDROCODONE [Concomitant]
  19. GLIPIZIDE [Concomitant]
     Dosage: UNK

REACTIONS (3)
  - Convulsion [Unknown]
  - Atrial fibrillation [Unknown]
  - Joint swelling [Unknown]
